FAERS Safety Report 11918963 (Version 2)
Quarter: 2016Q3

REPORT INFORMATION
  Report Type: Spontaneous
  Country: US (occurrence: US)
  Receive Date: 20160115
  Receipt Date: 20160907
  Transmission Date: 20161109
  Serious: Yes (Other)
  Sender: FDA-Public Use
  Company Number: US-JNJFOC-20151205917

PATIENT
  Age: 51 Year
  Sex: Male
  Weight: 78.02 kg

DRUGS (5)
  1. CIPROFLOXACIN. [Suspect]
     Active Substance: CIPROFLOXACIN
     Indication: PRODUCT USED FOR UNKNOWN INDICATION
     Route: 048
     Dates: start: 20110202
  2. PREDNISONE. [Suspect]
     Active Substance: PREDNISONE
     Indication: PRODUCT USED FOR UNKNOWN INDICATION
     Dosage: 60 MG FOR 3 DAYS, 40 MG FOR 3 DAYS, 20 MG 3 DAYS, 10 MG FOR 3 DAYS AND TBEN STOP
     Route: 048
     Dates: start: 20110506, end: 201105
  3. LEVAQUIN [Suspect]
     Active Substance: LEVOFLOXACIN
     Indication: COLITIS
     Route: 048
     Dates: start: 20100528, end: 20100604
  4. LEVAQUIN [Suspect]
     Active Substance: LEVOFLOXACIN
     Indication: PNEUMONIA
     Route: 048
     Dates: start: 20110506, end: 20110509
  5. CIPROFLOXACIN. [Suspect]
     Active Substance: CIPROFLOXACIN
     Indication: PRODUCT USED FOR UNKNOWN INDICATION
     Route: 048
     Dates: start: 20110127

REACTIONS (8)
  - Depression [Unknown]
  - Neuropathy peripheral [Not Recovered/Not Resolved]
  - Anxiety [Unknown]
  - Visual impairment [Not Recovered/Not Resolved]
  - Insomnia [Unknown]
  - Musculoskeletal disorder [Not Recovered/Not Resolved]
  - Skin injury [Not Recovered/Not Resolved]
  - Tendon injury [Unknown]

NARRATIVE: CASE EVENT DATE: 201005
